FAERS Safety Report 11780682 (Version 6)
Quarter: 2017Q3

REPORT INFORMATION
  Report Type: Report from Study
  Country: JP (occurrence: JP)
  Receive Date: 20151126
  Receipt Date: 20170810
  Transmission Date: 20171127
  Serious: Yes (Other)
  Sender: FDA-Public Use
  Company Number: JP-ROCHE-1666336

PATIENT

DRUGS (2)
  1. BEVACIZUMAB. [Suspect]
     Active Substance: BEVACIZUMAB
     Indication: COLORECTAL CANCER METASTATIC
     Route: 065
  2. TAS-102 [Suspect]
     Active Substance: TIPIRACIL HYDROCHLORIDE\TRIFLURIDINE
     Indication: COLORECTAL CANCER METASTATIC
     Dosage: 35 MG/M2 BID ON DAYS 1-5 AND 8-12 Q4W FOR LEVEL 1 AND 30 MG/M2 BID FOR LEVEL -1
     Route: 065

REACTIONS (12)
  - Proteinuria [Unknown]
  - Stomatitis [Unknown]
  - Aspartate aminotransferase increased [Unknown]
  - Hypertension [Unknown]
  - Neutropenia [Unknown]
  - Febrile neutropenia [Recovered/Resolved]
  - Thrombocytopenia [Unknown]
  - Leukopenia [Unknown]
  - Decreased appetite [Unknown]
  - Anaemia [Unknown]
  - Alanine aminotransferase increased [Unknown]
  - Blood bilirubin increased [Unknown]
